APPROVED DRUG PRODUCT: CLINDAMYCIN PHOSPHATE
Active Ingredient: CLINDAMYCIN PHOSPHATE
Strength: EQ 1% BASE
Dosage Form/Route: SOLUTION;TOPICAL
Application: A065254 | Product #001
Applicant: FOUGERA PHARMACEUTICALS INC
Approved: Feb 14, 2006 | RLD: No | RS: No | Type: DISCN